FAERS Safety Report 7809808-3 (Version None)
Quarter: 2011Q4

REPORT INFORMATION
  Report Type: 
  Country: None (occurrence: None)
  Receive Date: 20111012
  Receipt Date: 20111004
  Transmission Date: 20120403
  Serious: Yes (Other)
  Sender: FDA-Public Use
  Company Number: US-JNJFOC-20111003283

PATIENT

DRUGS (7)
  1. IFOSFAMIDE [Suspect]
     Indication: SARCOMA
     Route: 065
  2. MITOMYCIN [Suspect]
     Indication: SARCOMA
     Route: 065
  3. DOXORUBICIN HCL [Suspect]
     Indication: SARCOMA
     Route: 042
  4. DACARBAZINE [Suspect]
     Indication: SARCOMA
     Route: 065
  5. CISPLATIN [Suspect]
     Indication: SARCOMA
     Route: 065
  6. RADIATION THERAPY NOS [Suspect]
     Indication: SARCOMA
     Route: 065
  7. MESNA [Suspect]
     Indication: SARCOMA
     Route: 065

REACTIONS (1)
  - WOUND COMPLICATION [None]
